FAERS Safety Report 14759245 (Version 1)
Quarter: 2018Q2

REPORT INFORMATION
  Report Type: Spontaneous
  Country: US (occurrence: US)
  Receive Date: 20180413
  Receipt Date: 20180413
  Transmission Date: 20180711
  Serious: Yes (Disabling)
  Sender: FDA-Public Use
  Company Number: US-TEVA-2018-US-879770

PATIENT

DRUGS (3)
  1. TAXOTERE [Suspect]
     Active Substance: DOCETAXEL
     Dates: start: 201512, end: 201605
  2. DOCETAXEL. [Suspect]
     Active Substance: DOCETAXEL
     Dates: start: 201512, end: 201605
  3. DOCEFREZ [Suspect]
     Active Substance: DOCETAXEL ANHYDROUS
     Dates: start: 201512, end: 201605

REACTIONS (1)
  - Alopecia [Unknown]
